FAERS Safety Report 25927998 (Version 1)
Quarter: 2025Q4

REPORT INFORMATION
  Report Type: Spontaneous
  Country: EU (occurrence: EU)
  Receive Date: 20251016
  Receipt Date: 20251016
  Transmission Date: 20260117
  Serious: Yes (Hospitalization)
  Sender: CHEPLAPHARM
  Company Number: None

PATIENT
  Age: 60 Year
  Sex: Female
  Weight: 52 kg

DRUGS (1)
  1. OLANZAPINE PAMOATE [Suspect]
     Active Substance: OLANZAPINE PAMOATE
     Indication: Schizophrenia
     Dosage: POWDER AND SOLVENT FOR PROLONGED RELEASE SUSPENSION FOR INJECTION
     Dates: start: 20220602

REACTIONS (6)
  - Post-injection delirium sedation syndrome [Unknown]
  - Asthenia [Unknown]
  - Gait disturbance [Unknown]
  - Dysarthria [Unknown]
  - Hypotension [Unknown]
  - Heart rate decreased [Unknown]

NARRATIVE: CASE EVENT DATE: 20240130
